FAERS Safety Report 6455964-1 (Version None)
Quarter: 2009Q4

REPORT INFORMATION
  Report Type: 
  Country: None (occurrence: None)
  Receive Date: 20091125
  Receipt Date: 20091117
  Transmission Date: 20100525
  Serious: Yes (Hospitalization, Other)
  Sender: FDA-Public Use
  Company Number: US-ELI_LILLY_AND_COMPANY-US200910002230

PATIENT
  Sex: Female

DRUGS (3)
  1. BYETTA [Suspect]
     Indication: TYPE 2 DIABETES MELLITUS
     Dosage: 5 UG, 2/D
     Route: 058
     Dates: start: 20060101, end: 20060101
  2. BYETTA [Suspect]
     Dosage: 10 UG, 2/D
     Route: 058
     Dates: start: 20060101, end: 20090101
  3. CELEBREX [Concomitant]
     Dosage: 200 MG, 2/D

REACTIONS (16)
  - BLOOD GLUCOSE INCREASED [None]
  - BLOOD TRIGLYCERIDES INCREASED [None]
  - BREAST CANCER [None]
  - COMMUNICATION DISORDER [None]
  - CONFUSIONAL STATE [None]
  - DEHYDRATION [None]
  - DIARRHOEA [None]
  - GAIT DISTURBANCE [None]
  - GLYCOSYLATED HAEMOGLOBIN INCREASED [None]
  - KIDNEY INFECTION [None]
  - NAUSEA [None]
  - NEPHROLITHIASIS [None]
  - PYREXIA [None]
  - STENT PLACEMENT [None]
  - URINARY INCONTINENCE [None]
  - VOMITING [None]
